FAERS Safety Report 5534123-0 (Version None)
Quarter: 2007Q4

REPORT INFORMATION
  Report Type: 
  Country: None (occurrence: None)
  Receive Date: 20071205
  Receipt Date: 20071127
  Transmission Date: 20080405
  Serious: Yes (Other)
  Sender: FDA-Public Use
  Company Number: PHEH2007US12835

PATIENT
  Age: 20 Year
  Sex: Female

DRUGS (2)
  1. TRILEPTAL [Suspect]
     Indication: BIPOLAR DISORDER
     Dosage: 300 MG, QHS
     Route: 048
     Dates: start: 20070912, end: 20070919
  2. TRILEPTAL [Suspect]
     Dosage: 150 MG, QHS
     Route: 048
     Dates: start: 20070911, end: 20070912

REACTIONS (3)
  - PARAESTHESIA [None]
  - PERONEAL NERVE PALSY [None]
  - SCIATIC NERVE NEUROPATHY [None]
